FAERS Safety Report 20118785 (Version 1)
Quarter: 2021Q4

REPORT INFORMATION
  Report Type: Spontaneous
  Country: US (occurrence: None)
  Receive Date: 20211124
  Receipt Date: 20211124
  Transmission Date: 20220303
  Serious: Yes (Death)
  Sender: FDA-Public Use
  Company Number: None

PATIENT
  Age: 41 Year
  Sex: Female

DRUGS (1)
  1. VIVITROL [Suspect]
     Active Substance: NALTREXONE
     Indication: Drug use disorder
     Dosage: FREQUENCY : MONTHLY;?
     Route: 030

REACTIONS (3)
  - Overdose [None]
  - Toxicity to various agents [None]
  - Treatment noncompliance [None]

NARRATIVE: CASE EVENT DATE: 20210903
